FAERS Safety Report 7131592-X (Version None)
Quarter: 2010Q4

REPORT INFORMATION
  Report Type: 
  Country: None (occurrence: None)
  Receive Date: 20101201
  Receipt Date: 20101123
  Transmission Date: 20110411
  Serious: Yes (Other)
  Sender: FDA-Public Use
  Company Number: BR-ABBOTT-10P-020-0687503-00

PATIENT
  Sex: Male

DRUGS (1)
  1. AKINETON [Suspect]
     Indication: PRODUCT USED FOR UNKNOWN INDICATION
     Dosage: FORM STRENGTH; 2MG

REACTIONS (3)
  - ABNORMAL BEHAVIOUR [None]
  - FEELING ABNORMAL [None]
  - HALLUCINATION [None]
